FAERS Safety Report 7808064-X (Version None)
Quarter: 2011Q4

REPORT INFORMATION
  Report Type: 
  Country: None (occurrence: None)
  Receive Date: 20111011
  Receipt Date: 20111010
  Transmission Date: 20120403
  Serious: Yes (Hospitalization)
  Sender: FDA-Public Use
  Company Number: CZ-ABBOTT-11P-217-0861403-00

PATIENT
  Weight: 94 kg

DRUGS (8)
  1. BETAXOLOL [Concomitant]
     Indication: PRODUCT USED FOR UNKNOWN INDICATION
  2. KETOSTERIL [Concomitant]
     Indication: PRODUCT USED FOR UNKNOWN INDICATION
  3. TENAXUM [Concomitant]
     Indication: PRODUCT USED FOR UNKNOWN INDICATION
  4. ISRADIPINE [Concomitant]
     Indication: PRODUCT USED FOR UNKNOWN INDICATION
  5. ZEMPLAR [Suspect]
     Indication: PRODUCT USED FOR UNKNOWN INDICATION
  6. PANTOPRAZOLE [Concomitant]
     Indication: PRODUCT USED FOR UNKNOWN INDICATION
  7. FENOFIBRATE [Concomitant]
     Indication: PRODUCT USED FOR UNKNOWN INDICATION
  8. ALLOPURINOL [Concomitant]
     Indication: PRODUCT USED FOR UNKNOWN INDICATION
     Dosage: 200MG DAILY, 100MG 2 IN 1 DAY

REACTIONS (3)
  - PHLEBITIS [None]
  - PAIN IN EXTREMITY [None]
  - THROMBOPHLEBITIS [None]
